FAERS Safety Report 7000721-0 (Version None)
Quarter: 2010Q3

REPORT INFORMATION
  Report Type: 
  Country: None (occurrence: None)
  Receive Date: 20100920
  Receipt Date: 20100518
  Transmission Date: 20110219
  Serious: No
  Sender: FDA-Public Use
  Company Number: US-ASTRAZENECA-2010SE22773

PATIENT
  Age: 24 Year
  Sex: Female

DRUGS (14)
  1. SEROQUEL [Suspect]
     Indication: MAJOR DEPRESSION
     Route: 048
     Dates: start: 20100401, end: 20100426
  2. SEROQUEL [Suspect]
     Indication: POST-TRAUMATIC STRESS DISORDER
     Route: 048
     Dates: start: 20100401, end: 20100426
  3. SEROQUEL [Suspect]
     Route: 048
     Dates: start: 20100426
  4. SEROQUEL [Suspect]
     Route: 048
     Dates: start: 20100426
  5. SEROQUEL [Suspect]
     Route: 048
  6. SEROQUEL [Suspect]
     Route: 048
  7. SEROQUEL [Suspect]
     Route: 048
  8. SEROQUEL [Suspect]
     Route: 048
  9. NEURONTIN [Concomitant]
  10. LAMICTAL [Concomitant]
  11. TRAZODONE HCL [Concomitant]
  12. EFFEXOR [Concomitant]
  13. PRAZASIN [Concomitant]
  14. HALDOL [Concomitant]

REACTIONS (4)
  - DRUG EFFECT DECREASED [None]
  - INSOMNIA [None]
  - SOMNOLENCE [None]
  - SUNBURN [None]
